FAERS Safety Report 7759616-7 (Version None)
Quarter: 2011Q3

REPORT INFORMATION
  Report Type: 
  Country: None (occurrence: None)
  Receive Date: 20110919
  Receipt Date: 20110913
  Transmission Date: 20111222
  Serious: Yes (Death)
  Sender: FDA-Public Use
  Company Number: NL-ROCHE-802534

PATIENT
  Sex: Female
  Weight: 84 kg

DRUGS (3)
  1. XELODA [Suspect]
     Route: 048
     Dates: start: 20110725
  2. EPIRUBICIN [Concomitant]
     Dates: start: 20110725
  3. CISPLATIN [Concomitant]
     Dates: start: 20110725

REACTIONS (2)
  - DEATH [None]
  - CAECITIS [None]
